FAERS Safety Report 20966435 (Version 1)
Quarter: 2022Q2

REPORT INFORMATION
  Report Type: Spontaneous
  Country: US (occurrence: None)
  Receive Date: 20220615
  Receipt Date: 20220615
  Transmission Date: 20220721
  Serious: Yes (Hospitalization)
  Sender: FDA-Public Use
  Company Number: None

PATIENT
  Age: 67 Year
  Sex: Female
  Weight: 53.1 kg

DRUGS (2)
  1. INFLECTRA [Suspect]
     Active Substance: INFLIXIMAB-DYYB
     Indication: Crohn^s disease
     Dosage: OTHER FREQUENCY : AT 0, 2, 6 WEEKS;?
     Route: 042
  2. INFLECTRA [Concomitant]
     Active Substance: INFLIXIMAB-DYYB
     Dates: start: 20220525, end: 20220525

REACTIONS (6)
  - Bronchitis [None]
  - Nausea [None]
  - Abdominal pain [None]
  - Blood glucose decreased [None]
  - Chills [None]
  - Tremor [None]

NARRATIVE: CASE EVENT DATE: 20220525
